FAERS Safety Report 9329770 (Version 1)
Quarter: 2013Q2

REPORT INFORMATION
  Report Type: Spontaneous
  Country: US (occurrence: None)
  Receive Date: 20130531
  Receipt Date: 20130531
  Transmission Date: 20140414
  Serious: Yes (Other)
  Sender: FDA-Public Use
  Company Number: FK201301658

PATIENT
  Age: 30 Year
  Sex: Female

DRUGS (11)
  1. VANCOMYCIN [Suspect]
     Indication: MENINGITIS
  2. QUETIAPINE (QUETIAPINE) (QUETIAPINE) [Suspect]
     Indication: ANXIETY
  3. LEVETIRACETAM (LEVETIRACETAM) [Concomitant]
  4. NIMODIPINE (NIMODIPINE) [Concomitant]
  5. PRAVASTATIN (PRAVASTATIN) [Concomitant]
  6. DEXAMETHASONE (DEXAMETHASONE) [Suspect]
  7. PROPOFOL (PROPOFOL) [Concomitant]
  8. FENTANYL (FENTANYL) [Concomitant]
  9. CLONAZEPAM (CLONAZEPAM) (CLONAZEPAM) [Concomitant]
  10. MEROPENEM (MEROPENEM) [Concomitant]
  11. OLANZAPINE (OLANZAPINE) [Suspect]

REACTIONS (4)
  - Leukopenia [None]
  - Neutropenia [None]
  - Delirium [None]
  - Anxiety [None]
